FAERS Safety Report 13143384 (Version 1)
Quarter: 2017Q1

REPORT INFORMATION
  Report Type: Spontaneous
  Country: FR (occurrence: FR)
  Receive Date: 20170123
  Receipt Date: 20170123
  Transmission Date: 20170428
  Serious: Yes (Disabling)
  Sender: FDA-Public Use
  Company Number: FR-ROCHE-1882831

PATIENT
  Age: 60 Year
  Sex: Female

DRUGS (7)
  1. BELUSTINE [Concomitant]
     Active Substance: LOMUSTINE
  2. AVASTIN [Suspect]
     Active Substance: BEVACIZUMAB
     Indication: OVARIAN CANCER METASTATIC
     Route: 042
     Dates: start: 20160616, end: 20161117
  3. EMEND [Concomitant]
     Active Substance: APREPITANT
     Dosage: 125 MG AT D1 THEN 80 MG AT D2 AND 3
     Route: 065
  4. CARBOPLATINE [Concomitant]
     Active Substance: CARBOPLATIN
     Dosage: 4 AUC
     Route: 065
  5. GEMCITABINE [Concomitant]
     Active Substance: GEMCITABINE\GEMCITABINE HYDROCHLORIDE
     Dosage: 1 GM/M SQUARE (D1, D8)
     Route: 065
  6. CORTANCYL [Concomitant]
     Active Substance: PREDNISONE
     Dosage: 60 MG AT D1 THEN 40 MG AT D2 AND 3
     Route: 065
  7. ZOPHREN [Concomitant]
     Active Substance: ONDANSETRON
     Dosage: 8 MG AT D1
     Route: 065

REACTIONS (1)
  - Rotator cuff syndrome [Not Recovered/Not Resolved]

NARRATIVE: CASE EVENT DATE: 201611
